FAERS Safety Report 9745082 (Version 3)
Quarter: 2013Q4

REPORT INFORMATION
  Report Type: Report from Study
  Country: US (occurrence: US)
  Receive Date: 20131211
  Receipt Date: 20131223
  Transmission Date: 20140711
  Serious: Yes (Other)
  Sender: FDA-Public Use
  Company Number: US-JNJFOC-20131201381

PATIENT
  Sex: Female
  Weight: 54.43 kg

DRUGS (11)
  1. REMICADE [Suspect]
     Indication: RHEUMATOID ARTHRITIS
     Route: 042
     Dates: start: 20131113
  2. REMICADE [Suspect]
     Indication: RHEUMATOID ARTHRITIS
     Route: 042
     Dates: start: 20130612
  3. METHOTREXATE [Concomitant]
     Indication: RHEUMATOID ARTHRITIS
     Dosage: 6 PILLS
     Route: 048
  4. PRAVASTATIN [Concomitant]
     Route: 048
     Dates: start: 2013
  5. PREDNISONE [Concomitant]
     Indication: RHEUMATOID ARTHRITIS
     Dosage: 6 PILLS
     Route: 048
  6. FOLIC ACID [Concomitant]
     Route: 048
  7. BAYER ASPIRIN [Concomitant]
     Indication: MYOCARDIAL INFARCTION
     Route: 048
     Dates: start: 201209
  8. LISINOPRIL [Concomitant]
     Indication: HYPERTENSION
     Route: 048
  9. NEXIUM [Concomitant]
     Route: 048
     Dates: start: 2013
  10. ACTONEL [Concomitant]
     Dosage: COUPLE YEARS, INDICATION ^BONES^
     Route: 048
  11. TRAMADOL [Concomitant]
     Indication: PAIN
     Dosage: ONE TO TWO TABLETS 4 TIMES A DAY FROM LONG TIME
     Route: 048

REACTIONS (2)
  - Foot deformity [Recovered/Resolved]
  - Hearing impaired [Not Recovered/Not Resolved]
